FAERS Safety Report 12337985 (Version 1)
Quarter: 2016Q2

REPORT INFORMATION
  Report Type: Report from Study
  Country: AT (occurrence: AT)
  Receive Date: 20160505
  Receipt Date: 20160505
  Transmission Date: 20160815
  Serious: Yes (Death)
  Sender: FDA-Public Use
  Company Number: AT-MYLANLABS-2016M1018681

PATIENT

DRUGS (2)
  1. CAPECITABINE. [Suspect]
     Active Substance: CAPECITABINE
     Indication: BREAST CANCER FEMALE
     Dosage: ON DAYS 1-14 OF THE CYCLE
     Route: 065
  2. BENDAMUSTINE [Concomitant]
     Active Substance: BENDAMUSTINE
     Indication: BREAST CANCER FEMALE
     Dosage: 80 MG/M2 (DAY 1 AND 8 OF A 3-WEEK CYCLE)
     Route: 065

REACTIONS (1)
  - Restrictive cardiomyopathy [Fatal]
